FAERS Safety Report 8278070-2 (Version None)
Quarter: 2012Q2

REPORT INFORMATION
  Report Type: 
  Country: None (occurrence: None)
  Receive Date: 20120412
  Receipt Date: 20120410
  Transmission Date: 20120825
  Serious: Yes (Other)
  Sender: FDA-Public Use
  Company Number: GXKR2012DE001407

PATIENT
  Age: 64 Year
  Sex: Male
  Weight: 81.5 kg

DRUGS (1)
  1. AMLODIPINE [Suspect]
     Dosage: 5 MG, QD
     Route: 048

REACTIONS (29)
  - MYALGIA [None]
  - ABDOMINAL PAIN UPPER [None]
  - DYSURIA [None]
  - MUSCULOSKELETAL STIFFNESS [None]
  - COUGH [None]
  - CONSTIPATION [None]
  - CHEST PAIN [None]
  - BLOOD PRESSURE INCREASED [None]
  - ANXIETY [None]
  - SNEEZING [None]
  - TACHYCARDIA [None]
  - MUSCLE SPASMS [None]
  - RENAL PAIN [None]
  - CHOKING SENSATION [None]
  - PAIN [None]
  - GINGIVAL PAIN [None]
  - CHEST DISCOMFORT [None]
  - BURNING SENSATION [None]
  - MUSCLE TWITCHING [None]
  - TINNITUS [None]
  - ABDOMINAL DISCOMFORT [None]
  - PRURITUS GENERALISED [None]
  - DEPRESSED LEVEL OF CONSCIOUSNESS [None]
  - DIZZINESS [None]
  - ARTHRALGIA [None]
  - NIPPLE SWELLING [None]
  - PARAESTHESIA [None]
  - VISION BLURRED [None]
  - DRY MOUTH [None]
